FAERS Safety Report 5794986-0 (Version None)
Quarter: 2008Q2

REPORT INFORMATION
  Report Type: 
  Country: None (occurrence: None)
  Receive Date: 20080627
  Receipt Date: 20080627
  Transmission Date: 20081010
  Serious: No
  Sender: FDA-Public Use
  Company Number: None

PATIENT
  Sex: Male
  Weight: 90.7194 kg

DRUGS (1)
  1. DIGITEK 0.125MG ? [Suspect]
     Indication: ARRHYTHMIA
     Dosage: 1 ONCE PER DAY PO
     Route: 048

REACTIONS (1)
  - PALPITATIONS [None]
